FAERS Safety Report 4761040-6 (Version None)
Quarter: 2005Q3

REPORT INFORMATION
  Report Type: 
  Country: None (occurrence: None)
  Receive Date: 20050901
  Receipt Date: 20050819
  Transmission Date: 20060218
  Serious: Yes (Hospitalization)
  Sender: FDA-Public Use
  Company Number: US015527

PATIENT
  Age: 56 Year
  Sex: Female

DRUGS (5)
  1. GABITRIL [Suspect]
     Indication: SLEEP DISORDER
     Dosage: 2 MG BID ORAL
     Route: 048
     Dates: start: 20040501, end: 20040601
  2. GABITRIL [Suspect]
     Indication: SLEEP DISORDER
     Dosage: 8 MG QHS, ORAL
     Route: 048
     Dates: start: 20040601, end: 20040701
  3. GABITRIL [Suspect]
     Indication: SLEEP DISORDER
     Dosage: 12 MG QHS, ORAL
     Route: 048
     Dates: start: 20040701, end: 20040701
  4. KLONOPIN [Concomitant]
  5. LITHIUM CARBONATE [Concomitant]

REACTIONS (10)
  - AGITATION [None]
  - CONFUSIONAL STATE [None]
  - CONVULSION [None]
  - DECREASED ACTIVITY [None]
  - DRUG ABUSER [None]
  - DRUG WITHDRAWAL SYNDROME [None]
  - INCONTINENCE [None]
  - INTENTIONAL MISUSE [None]
  - OVERDOSE [None]
  - TREATMENT NONCOMPLIANCE [None]
